FAERS Safety Report 12438190 (Version 8)
Quarter: 2018Q3

REPORT INFORMATION
  Report Type: Report from Study
  Country: JP (occurrence: JP)
  Receive Date: 20160606
  Receipt Date: 20180904
  Transmission Date: 20181010
  Serious: Yes (Death, Life-Threatening, Hospitalization, Other)
  Sender: FDA-Public Use
  Company Number: JP-OTSUKA-2016_011959

PATIENT
  Age: 52 Year
  Sex: Female
  Weight: 58.2 kg

DRUGS (6)
  1. FERROMIA [Concomitant]
     Active Substance: SODIUM FERROUS CITRATE
     Indication: PRODUCT USED FOR UNKNOWN INDICATION
     Dosage: UNK
     Route: 048
  2. TOLVAPTAN [Suspect]
     Active Substance: TOLVAPTAN
     Indication: CONGENITAL CYSTIC KIDNEY DISEASE
     Dosage: 60 MG, DAILY DOSE (DIVIDED 2 DOSES)
     Route: 048
     Dates: start: 20151006, end: 20160509
  3. AMLODIN [Concomitant]
     Active Substance: AMLODIPINE BESYLATE
     Indication: PRODUCT USED FOR UNKNOWN INDICATION
     Dosage: UNK
     Route: 048
  4. TOLVAPTAN [Suspect]
     Active Substance: TOLVAPTAN
     Dosage: 60 MG, DAILY DOSE (DIVIDED 2 DOSES)
     Route: 048
     Dates: start: 20160525, end: 20160527
  5. OLMETEC [Concomitant]
     Active Substance: OLMESARTAN MEDOXOMIL
     Indication: PRODUCT USED FOR UNKNOWN INDICATION
     Dosage: UNK
     Route: 048
  6. NESP [Concomitant]
     Active Substance: DARBEPOETIN ALFA
     Indication: PRODUCT USED FOR UNKNOWN INDICATION
     Dosage: 180 ?G, QM
     Route: 042

REACTIONS (8)
  - Jaundice [Not Recovered/Not Resolved]
  - Lethargy [Unknown]
  - Liver disorder [Not Recovered/Not Resolved]
  - Functional gastrointestinal disorder [Unknown]
  - Renal impairment [Unknown]
  - Hepatic function abnormal [Unknown]
  - Malaise [Unknown]
  - Intestinal perforation [Fatal]

NARRATIVE: CASE EVENT DATE: 20160509
